FAERS Safety Report 9224714 (Version 1)
Quarter: 2013Q2

REPORT INFORMATION
  Report Type: Other
  Country: PL (occurrence: PL)
  Receive Date: 20130411
  Receipt Date: 20130411
  Transmission Date: 20140414
  Serious: Yes (Death, Other)
  Sender: FDA-Public Use
  Company Number: PL-BRISTOL-MYERS SQUIBB COMPANY-18735050

PATIENT
  Age: 33 Year
  Sex: Female

DRUGS (4)
  1. CISPLATIN [Suspect]
     Indication: LYMPHOMA
     Dosage: (100MG/M2) 1-4.
     Route: 042
  2. ETOPOSIDE [Concomitant]
     Indication: LYMPHOMA
     Dosage: DAYS 1-4
     Route: 042
  3. METHYLPREDNISOLONE [Concomitant]
     Indication: LYMPHOMA
     Route: 042
  4. CYTARABINE [Concomitant]
     Dosage: 1 DF= 3.16 (2G/M2) ON DAY 5

REACTIONS (4)
  - Drug administration error [Fatal]
  - Overdose [Fatal]
  - Sepsis [Fatal]
  - Deafness [Not Recovered/Not Resolved]
